FAERS Safety Report 22400407 (Version 4)
Quarter: 2023Q2

REPORT INFORMATION
  Report Type: Spontaneous
  Country: LT (occurrence: LT)
  Receive Date: 20230602
  Receipt Date: 20230622
  Transmission Date: 20230721
  Serious: Yes (Death, Other)
  Sender: FDA-Public Use
  Company Number: LT-AMGEN-LTUSP2023083629

PATIENT
  Age: 66 Year
  Sex: Male

DRUGS (7)
  1. LENALIDOMIDE [Suspect]
     Active Substance: LENALIDOMIDE
     Indication: Plasmacytoma
     Dosage: UNK
     Route: 065
  2. BORTEZOMIB [Suspect]
     Active Substance: BORTEZOMIB
     Indication: Plasmacytoma
     Dosage: DARA-VMP (DARATUMUMAB, BORTEZOMIB, MELPHALAN
     Route: 065
  3. DEXAMETHASONE [Suspect]
     Active Substance: DEXAMETHASONE
     Indication: Plasmacytoma
     Dosage: UNK
     Route: 065
  4. CARFILZOMIB [Suspect]
     Active Substance: CARFILZOMIB
     Indication: Plasmacytoma
     Dosage: UNK
     Route: 065
  5. DARATUMUMAB [Suspect]
     Active Substance: DARATUMUMAB
     Indication: Plasmacytoma
     Dosage: DARA-VMP (DARATUMUMAB, BORTEZOMIB, MELPHALAN
     Route: 065
  6. ALKERAN [Suspect]
     Active Substance: MELPHALAN
     Indication: Plasmacytoma
     Dosage: 18 MILLIGRAM, QD, 4 DAYS
     Route: 065
  7. PREDNISOLONE [Suspect]
     Active Substance: PREDNISOLONE
     Indication: Plasmacytoma
     Dosage: DARA-VMP (DARATUMUMAB, BORTEZOMIB,
     Route: 065

REACTIONS (5)
  - Death [Fatal]
  - COVID-19 [Recovered/Resolved]
  - Plasmacytoma [Unknown]
  - Drug ineffective [Unknown]
  - Off label use [Unknown]
